FAERS Safety Report 5374832-X (Version None)
Quarter: 2007Q2

REPORT INFORMATION
  Report Type: 
  Country: None (occurrence: None)
  Receive Date: 20070629
  Receipt Date: 20070621
  Transmission Date: 20071010
  Serious: Yes (Other)
  Sender: FDA-Public Use
  Company Number: A0660783A

PATIENT
  Sex: Male

DRUGS (3)
  1. AVANDIA [Suspect]
     Route: 048
  2. INSULIN [Concomitant]
  3. METFORMIN HCL [Concomitant]
     Dosage: 850MG THREE TIMES PER DAY

REACTIONS (3)
  - BACK PAIN [None]
  - COLOUR BLINDNESS [None]
  - VISUAL DISTURBANCE [None]
